FAERS Safety Report 17510520 (Version 1)
Quarter: 2020Q1

REPORT INFORMATION
  Report Type: Spontaneous
  Country: CN (occurrence: CN)
  Receive Date: 20200306
  Receipt Date: 20200306
  Transmission Date: 20200409
  Serious: Yes (Hospitalization)
  Sender: FDA-Public Use
  Company Number: CN-SUN PHARMACEUTICAL INDUSTRIES LTD-2020R1-239240

PATIENT
  Age: 25 Year
  Sex: Male

DRUGS (1)
  1. METHIMAZOLE. [Suspect]
     Active Substance: METHIMAZOLE
     Indication: PRODUCT USED FOR UNKNOWN INDICATION
     Dosage: 30 MILLIGRAM, DAILY
     Route: 065

REACTIONS (4)
  - Agranulocytosis [Recovering/Resolving]
  - Hashimoto^s encephalopathy [Unknown]
  - Pancytopenia [Recovering/Resolving]
  - Pyrexia [Recovering/Resolving]
